FAERS Safety Report 24799096 (Version 2)
Quarter: 2025Q1

REPORT INFORMATION
  Report Type: Spontaneous
  Country: ES (occurrence: ES)
  Receive Date: 20250102
  Receipt Date: 20250307
  Transmission Date: 20250408
  Serious: Yes (Life-Threatening, Hospitalization, Other)
  Sender: ALEXION PHARMACEUTICALS
  Company Number: ES-SA-2024SA384456

PATIENT
  Age: 1 Month
  Weight: 4.2 kg

DRUGS (2)
  1. NIRSEVIMAB [Suspect]
     Active Substance: NIRSEVIMAB
     Indication: Respiratory syncytial virus immunisation
     Dosage: 50 MILLIGRAM, QD
     Route: 065
  2. VITAMIN D3 [Concomitant]
     Active Substance: CHOLECALCIFEROL

REACTIONS (4)
  - Respiratory syncytial virus infection [Unknown]
  - Respiratory syncytial virus bronchiolitis [Recovered/Resolved]
  - Pleural effusion [Recovered/Resolved]
  - Drug ineffective [Unknown]
